FAERS Safety Report 18666616 (Version 2)
Quarter: 2021Q1

REPORT INFORMATION
  Report Type: Spontaneous
  Country: US (occurrence: US)
  Receive Date: 20201227
  Receipt Date: 20210105
  Transmission Date: 20210419
  Serious: Yes (Hospitalization, Other)
  Sender: FDA-Public Use
  Company Number: US-TEVA-2020-US-1863647

PATIENT
  Age: 65 Year
  Sex: Male

DRUGS (15)
  1. VALSARTAN AVKARE [Suspect]
     Active Substance: VALSARTAN
     Indication: HYPERTENSION
     Dosage: 320 MILLIGRAM DAILY;
     Route: 048
  2. VALSARTAN TEVA [Suspect]
     Active Substance: VALSARTAN
     Indication: HYPERTENSION
     Dosage: 320 MILLIGRAM DAILY;
     Route: 048
  3. NAPROXEN. [Concomitant]
     Active Substance: NAPROXEN
     Indication: ARTHRALGIA
     Dosage: 1000 MILLIGRAM DAILY;
     Dates: start: 201410, end: 2015
  4. ZETIA [Concomitant]
     Active Substance: EZETIMIBE
     Indication: BLOOD CHOLESTEROL
     Dosage: 10 MILLIGRAM DAILY;
     Route: 048
     Dates: start: 201308
  5. VALSARTAN AVKARE [Suspect]
     Active Substance: VALSARTAN
     Dosage: 320 MILLIGRAM DAILY;
     Route: 048
  6. ALBUTEROL INHALER [Concomitant]
     Active Substance: ALBUTEROL
     Dosage: 2 PUFFS INTO THE LUNGS
     Route: 065
  7. KETOROLAC TROMETHAMINE. [Concomitant]
     Active Substance: KETOROLAC TROMETHAMINE
     Dosage: 10 MILLIGRAM DAILY;
     Route: 048
  8. AZELASTINE 0.1% [Concomitant]
     Dosage: 2 SPRAYS 2 TIMES DAILY
     Route: 065
  9. VALSARTAN SOLCO [Suspect]
     Active Substance: VALSARTAN
     Indication: HYPERTENSION
     Dosage: 320 MILLIGRAM DAILY; 320MG
     Route: 048
     Dates: start: 20151215, end: 20180614
  10. VALSARTAN LUPIN [Suspect]
     Active Substance: VALSARTAN
     Indication: HYPERTENSION
     Dosage: 320 MILLIGRAM DAILY;
     Route: 048
  11. VALSARTAN ACTAVIS [Suspect]
     Active Substance: VALSARTAN
     Indication: HYPERTENSION
     Dosage: 320 MILLIGRAM DAILY; 320MG
     Route: 048
     Dates: start: 20150317, end: 20151207
  12. CENTRUM SILVER [Concomitant]
     Active Substance: MINERALS\VITAMINS
     Indication: VITAMIN SUPPLEMENTATION
     Dosage: 1 DOSAGE FORMS DAILY;
     Dates: start: 2000
  13. DIOVAN [Suspect]
     Active Substance: VALSARTAN
     Indication: HYPERTENSION
     Dosage: 320 MILLIGRAM DAILY;
     Route: 048
     Dates: start: 201412, end: 201501
  14. CIALIS [Concomitant]
     Active Substance: TADALAFIL
     Dosage: 20 MILLIGRAM DAILY; PRN
     Route: 048
  15. PANTOPRAZOLE SODIUM. [Concomitant]
     Active Substance: PANTOPRAZOLE SODIUM
     Dosage: 40 MILLIGRAM DAILY;
     Route: 048

REACTIONS (1)
  - Bladder cancer [Unknown]
